FAERS Safety Report 18811083 (Version 2)
Quarter: 2021Q1

REPORT INFORMATION
  Report Type: Spontaneous
  Country: FI (occurrence: FI)
  Receive Date: 20210129
  Receipt Date: 20210216
  Transmission Date: 20210419
  Serious: Yes (Hospitalization, Disabling)
  Sender: FDA-Public Use
  Company Number: NVSC2021FI017593

PATIENT
  Age: 63 Year
  Sex: Female
  Weight: 95 kg

DRUGS (1)
  1. VOLTAREN RAPID [Suspect]
     Active Substance: DICLOFENAC POTASSIUM
     Indication: ARTHRALGIA
     Dosage: 50 MG
     Route: 065
     Dates: start: 2007

REACTIONS (3)
  - Gastric ulcer [Unknown]
  - Gait disturbance [Not Recovered/Not Resolved]
  - Hypotonia [Unknown]

NARRATIVE: CASE EVENT DATE: 2020
